FAERS Safety Report 22534584 (Version 1)
Quarter: 2023Q2

REPORT INFORMATION
  Report Type: Spontaneous
  Country: US (occurrence: US)
  Receive Date: 20230608
  Receipt Date: 20230608
  Transmission Date: 20230721
  Serious: Yes (Hospitalization)
  Sender: FDA-Public Use
  Company Number: US-STRIDES ARCOLAB LIMITED-2022SP011322

PATIENT
  Age: 86 Year
  Sex: Female

DRUGS (11)
  1. CALCITONIN [Suspect]
     Active Substance: CALCITONIN
     Indication: Parathyroid tumour benign
     Dosage: UNK
     Route: 065
  2. CALCITONIN [Suspect]
     Active Substance: CALCITONIN
     Indication: Hypercalcaemia
  3. CINACALCET [Suspect]
     Active Substance: CINACALCET
     Indication: Parathyroid tumour benign
     Dosage: UNK
     Route: 065
  4. CINACALCET [Suspect]
     Active Substance: CINACALCET
     Indication: Hypercalcaemia
  5. FUROSEMIDE [Suspect]
     Active Substance: FUROSEMIDE
     Indication: Parathyroid tumour benign
     Dosage: UNK
     Route: 065
  6. FUROSEMIDE [Suspect]
     Active Substance: FUROSEMIDE
     Indication: Hypercalcaemia
  7. IBANDRONATE SODIUM [Suspect]
     Active Substance: IBANDRONATE SODIUM
     Indication: Parathyroid tumour benign
     Dosage: UNK
     Route: 065
  8. IBANDRONATE SODIUM [Suspect]
     Active Substance: IBANDRONATE SODIUM
     Indication: Hypercalcaemia
  9. PAMIDRONATE [Suspect]
     Active Substance: PAMIDRONATE DISODIUM
     Indication: Parathyroid tumour benign
     Dosage: UNK
     Route: 065
  10. PAMIDRONATE [Suspect]
     Active Substance: PAMIDRONATE DISODIUM
     Indication: Hypercalcaemia
  11. SODIUM CHLORIDE [Suspect]
     Active Substance: SODIUM CHLORIDE
     Indication: Parathyroid tumour benign
     Dosage: UNK
     Route: 042

REACTIONS (2)
  - Drug ineffective [Unknown]
  - Off label use [Unknown]
